FAERS Safety Report 8060410-0 (Version None)
Quarter: 2012Q1

REPORT INFORMATION
  Report Type: 
  Country: None (occurrence: None)
  Receive Date: 20120120
  Receipt Date: 20120116
  Transmission Date: 20120608
  Serious: Yes (Hospitalization, Other)
  Sender: FDA-Public Use
  Company Number: US-GLAXOSMITHKLINE-A0950572A

PATIENT
  Age: 75 Year
  Sex: Male

DRUGS (1)
  1. AVANDIA [Suspect]
     Indication: DIABETES MELLITUS
     Dosage: 4MG PER DAY
     Route: 048
     Dates: start: 20021001, end: 20100301

REACTIONS (6)
  - DYSPNOEA [None]
  - CHEST PAIN [None]
  - ANGINA UNSTABLE [None]
  - MYOCARDIAL INFARCTION [None]
  - STENT PLACEMENT [None]
  - ANGINA PECTORIS [None]
